FAERS Safety Report 5490291-0 (Version None)
Quarter: 2007Q4

REPORT INFORMATION
  Report Type: 
  Country: None (occurrence: None)
  Receive Date: 20071017
  Receipt Date: 20071003
  Transmission Date: 20080405
  Serious: Yes (Death, Hospitalization)
  Sender: FDA-Public Use
  Company Number: POMP-11161

PATIENT
  Age: 9 Month
  Sex: Male
  Weight: 6.28 kg

DRUGS (12)
  1. MYOZYME [Suspect]
     Indication: GLYCOGEN STORAGE DISEASE TYPE II
     Dosage: 50 MG ONCE IV
     Route: 042
     Dates: start: 20070817, end: 20070817
  2. MYOZYME [Suspect]
     Indication: GLYCOGEN STORAGE DISEASE TYPE II
     Dosage: 100 MG ONCE IV
     Route: 042
     Dates: start: 20070810, end: 20070810
  3. MYOZYME [Suspect]
     Indication: GLYCOGEN STORAGE DISEASE TYPE II
     Dosage: 150 MG ONCE IV
     Route: 042
     Dates: start: 20070803, end: 20070803
  4. FENTANYL [Concomitant]
  5. PROPRANOLOL [Concomitant]
  6. PULMICORT [Concomitant]
  7. BUDESONIDE [Concomitant]
  8. MIRLAX [Concomitant]
  9. TIMENTIN [Concomitant]
  10. GENTAMICIN [Concomitant]
  11. GLYCERIA [Concomitant]
  12. LASIX [Concomitant]

REACTIONS (6)
  - CARDIAC ARREST [None]
  - COUGH [None]
  - FLUID OVERLOAD [None]
  - HEPATOMEGALY [None]
  - RESPIRATORY FAILURE [None]
  - WHEEZING [None]
